FAERS Safety Report 19832351 (Version 1)
Quarter: 2021Q3

REPORT INFORMATION
  Report Type: Spontaneous
  Country: NL (occurrence: NL)
  Receive Date: 20210914
  Receipt Date: 20210914
  Transmission Date: 20211014
  Serious: Yes (Other)
  Sender: FDA-Public Use
  Company Number: NL-MYLANLABS-2021M1062421

PATIENT
  Age: 37 Month
  Sex: Female

DRUGS (16)
  1. INTERLEUKIN?2 [Suspect]
     Active Substance: ALDESLEUKIN
     Dosage: 3.0 X 106 IU/M2/DAY ON 4 CONSECUTIVE DAYS BY IV CONTINUOUS INFUSION IN WEEK 1
     Route: 042
  2. SARGRAMOSTIM [Suspect]
     Active Substance: SARGRAMOSTIM
     Dosage: ON 14 CONSECUTIVE DAYS BY SUBCUTANEOUS ROUTE (COURSE 3)
     Route: 058
  3. ISOTRETINOIN. [Suspect]
     Active Substance: ISOTRETINOIN
     Dosage: 160 MILLIGRAM/SQ. METER, QD ON 14 CONSECUTIVE DAYS (COURSE 2)
     Route: 065
  4. SARGRAMOSTIM [Suspect]
     Active Substance: SARGRAMOSTIM
     Indication: NEUROBLASTOMA
     Dosage: ON 14 CONSECUTIVE DAYS BY SUBCUTANEOUS ROUTE (COURSE 1)
     Route: 058
  5. ISOTRETINOIN. [Suspect]
     Active Substance: ISOTRETINOIN
     Dosage: 160 MILLIGRAM/SQ. METER, QD ON 14 CONSECUTIVE DAYS (COURSE 4)
     Route: 065
  6. ISOTRETINOIN. [Suspect]
     Active Substance: ISOTRETINOIN
     Indication: NEUROBLASTOMA
     Dosage: 160 MILLIGRAM/SQ. METER, QD ON 14 CONSECUTIVE DAYS (COURSE 1)
     Route: 065
  7. ISOTRETINOIN. [Suspect]
     Active Substance: ISOTRETINOIN
     Dosage: 160 MILLIGRAM/SQ. METER, QD ON 14 CONSECUTIVE DAYS (COURSE 6)
     Route: 065
  8. QARZIBA [Suspect]
     Active Substance: DINUTUXIMAB BETA
     Indication: NEUROBLASTOMA
     Dosage: 20 MILLIGRAM/SQ. METER 8 HOUR INFUSION (MAX 16 HOURS) ON 5 CONSECUTIVE DAYS, COURSE 3
     Route: 042
  9. QARZIBA [Suspect]
     Active Substance: DINUTUXIMAB BETA
     Dosage: 8 HOUR INFUSION (MAX 16 HOURS) ON 5 CONSECUTIVE DAYS, COURSE 2UNK
     Route: 042
  10. QARZIBA [Suspect]
     Active Substance: DINUTUXIMAB BETA
     Dosage: GIVEN BY 8 HOUR INFUSION (MAX 16 HOURS) ON 5 CONSECUTIVE DAYS, COURSE 4
     Route: 042
  11. INTERLEUKIN?2 [Suspect]
     Active Substance: ALDESLEUKIN
     Indication: NEUROBLASTOMA
     Dosage: 4.5 X 106 IU/M2/DAY ON 5 CONSECUTIVE DAYS BY IV CONTINUOUS INFUSION IN WEEK 2
     Route: 042
  12. QARZIBA [Suspect]
     Active Substance: DINUTUXIMAB BETA
     Dosage: GIVEN BY 8 HOUR INFUSION (MAX 16 HOURS) ON 5 CONSECUTIVE DAYS, COURSE 1
     Route: 042
  13. ISOTRETINOIN. [Suspect]
     Active Substance: ISOTRETINOIN
     Dosage: 160 MILLIGRAM, QD ON 14 CONSECUTIVE DAYS (COURSE 5)
     Route: 065
  14. ISOTRETINOIN. [Suspect]
     Active Substance: ISOTRETINOIN
     Dosage: 160 MILLIGRAM/SQ. METER, QD ON 14 CONSECUTIVE DAYS (COURSE 3)
     Route: 065
  15. QARZIBA [Suspect]
     Active Substance: DINUTUXIMAB BETA
     Dosage: GIVEN BY 8 HOUR INFUSION (MAX 16 HOURS) ON 5 CONSECUTIVE DAYS, COURSE 5
     Route: 042
  16. SARGRAMOSTIM [Suspect]
     Active Substance: SARGRAMOSTIM
     Dosage: 250 MICROGRAM/SQ. METER, QD ON 14 CONSECUTIVE DAYS BY SUBCUTANEOUS ROUTE (COURSE 5)
     Route: 058

REACTIONS (5)
  - Blood creatinine abnormal [Unknown]
  - Device related bacteraemia [Unknown]
  - Pyrexia [Unknown]
  - Hypertension [Unknown]
  - Pain [Unknown]
